FAERS Safety Report 9638731 (Version 2)
Quarter: 2013Q4

REPORT INFORMATION
  Report Type: Spontaneous
  Country: US (occurrence: US)
  Receive Date: 20131022
  Receipt Date: 20131022
  Transmission Date: 20140711
  Serious: No
  Sender: FDA-Public Use
  Company Number: US-BRISTOL-MYERS SQUIBB COMPANY-19228444

PATIENT
  Age: 67 Year
  Sex: Female
  Weight: 82.54 kg

DRUGS (1)
  1. ELIQUIS [Suspect]
     Indication: TRANSIENT ISCHAEMIC ATTACK

REACTIONS (3)
  - Swelling face [Unknown]
  - Asthenia [Unknown]
  - Dizziness [Unknown]
